FAERS Safety Report 7340148-5 (Version None)
Quarter: 2011Q1

REPORT INFORMATION
  Report Type: 
  Country: None (occurrence: None)
  Receive Date: 20110228
  Receipt Date: 20110214
  Transmission Date: 20110831
  Serious: Yes (Other)
  Sender: FDA-Public Use
  Company Number: B0701346A

PATIENT
  Sex: 0

DRUGS (1)
  1. MELPHALAN HYDROCHLORIDE [Suspect]
     Indication: METASTATIC MALIGNANT MELANOMA

REACTIONS (1)
  - DISSEMINATED INTRAVASCULAR COAGULATION [None]
